FAERS Safety Report 8190369-7 (Version None)
Quarter: 2012Q1

REPORT INFORMATION
  Report Type: 
  Country: None (occurrence: None)
  Receive Date: 20120307
  Receipt Date: 20120301
  Transmission Date: 20120608
  Serious: Yes (Life-Threatening)
  Sender: FDA-Public Use
  Company Number: FR-PFIZER INC-2012054754

PATIENT
  Age: 58 Year
  Sex: Male

DRUGS (7)
  1. TARCEVA [Concomitant]
     Dosage: UNK
  2. ZITHROMAX [Suspect]
     Indication: OROPHARYNGEAL PAIN
     Dosage: 250 MG, 1X/DAY
     Route: 048
     Dates: start: 20110911, end: 20110916
  3. ASPIRIN [Interacting]
     Indication: PROPHYLAXIS
     Dosage: 75 MG, 1X/DAY
     Route: 048
     Dates: end: 20110919
  4. IMOVANE [Concomitant]
     Dosage: UNK
  5. BISOPROLOL FUMARATE [Concomitant]
     Dosage: UNK
  6. ATARAX [Concomitant]
     Dosage: UNK
  7. PREVISCAN [Interacting]
     Indication: PROPHYLAXIS
     Dosage: 1 DF, 1X/DAY
     Route: 048
     Dates: start: 20100101, end: 20110919

REACTIONS (13)
  - HAEMATEMESIS [None]
  - PLATELET COUNT INCREASED [None]
  - GASTRITIS EROSIVE [None]
  - DRUG INTERACTION [None]
  - ASTHENIA [None]
  - MEAN CELL VOLUME DECREASED [None]
  - OVERDOSE [None]
  - HAEMOGLOBIN DECREASED [None]
  - OESOPHAGITIS [None]
  - DIVERTICULUM GASTRIC [None]
  - RECTAL HAEMORRHAGE [None]
  - PALLOR [None]
  - INTERNATIONAL NORMALISED RATIO INCREASED [None]
